FAERS Safety Report 25689298 (Version 2)
Quarter: 2025Q3

REPORT INFORMATION
  Report Type: Report from Study
  Country: US (occurrence: US)
  Receive Date: 20250818
  Receipt Date: 20250930
  Transmission Date: 20251020
  Serious: Yes (Hospitalization)
  Sender: UCB
  Company Number: US-UCBSA-2025034258

PATIENT
  Sex: Female

DRUGS (6)
  1. FINTEPLA [Suspect]
     Active Substance: FENFLURAMINE
     Indication: Lennox-Gastaut syndrome
     Dosage: 3 MILLILITER, 2X/DAY (BID)
     Dates: start: 20250429, end: 2025
  2. FINTEPLA [Suspect]
     Active Substance: FENFLURAMINE
     Dosage: 3 MILLILITER, 2X/DAY (BID)
     Dates: start: 2025, end: 2025
  3. FINTEPLA [Suspect]
     Active Substance: FENFLURAMINE
     Dosage: 3 MILLILITER, 2X/DAY (BID)
     Route: 048
     Dates: start: 2025
  4. CLOBAZAM [Concomitant]
     Active Substance: CLOBAZAM
     Indication: Lennox-Gastaut syndrome
     Dosage: 5 MILLIGRAM, ONCE DAILY (QD)
     Route: 048
     Dates: start: 202209
  5. KEPPRA [Concomitant]
     Active Substance: LEVETIRACETAM
     Indication: Lennox-Gastaut syndrome
     Dosage: 250 MILLIGRAM, 2X/DAY (BID)
     Route: 048
     Dates: start: 202208
  6. EPIDIOLEX [Concomitant]
     Active Substance: CANNABIDIOL
     Indication: Lennox-Gastaut syndrome
     Dosage: 1.8 MILLILITER, ONCE DAILY (QD)
     Route: 048
     Dates: start: 202207

REACTIONS (3)
  - Femur fracture [Unknown]
  - Skin exfoliation [Recovered/Resolved]
  - Calcium deficiency [Unknown]

NARRATIVE: CASE EVENT DATE: 20250101
